FAERS Safety Report 17080319 (Version 1)
Quarter: 2019Q4

REPORT INFORMATION
  Report Type: Spontaneous
  Country: BE (occurrence: BE)
  Receive Date: 20191127
  Receipt Date: 20191127
  Transmission Date: 20200122
  Serious: Yes (Other)
  Sender: FDA-Public Use
  Company Number: BE-TEVA-2019-BE-1141439

PATIENT
  Sex: Female

DRUGS (1)
  1. RANITIDINE 300 MG [Suspect]
     Active Substance: RANITIDINE HYDROCHLORIDE
     Dosage: 1 DOSAGE FORMS
     Route: 048
     Dates: start: 20190712

REACTIONS (6)
  - Tremor [Not Recovered/Not Resolved]
  - Fatigue [Unknown]
  - Dystonia [Not Recovered/Not Resolved]
  - Renal impairment [Unknown]
  - Thyroid hormones increased [Unknown]
  - Vision blurred [Recovered/Resolved]

NARRATIVE: CASE EVENT DATE: 201903
